FAERS Safety Report 4733909-X (Version None)
Quarter: 2005Q3

REPORT INFORMATION
  Report Type: 
  Country: None (occurrence: None)
  Receive Date: 20050801
  Receipt Date: 20050713
  Transmission Date: 20060218
  Serious: Yes (Other)
  Sender: FDA-Public Use
  Company Number: CHPA2004US04241

PATIENT
  Age: 21 Year
  Sex: Male

DRUGS (2)
  1. KROGER STEP 2 14MG (NCH) (NICOTINE) TRANS-THERAPEUTIC-SYSTEM [Suspect]
     Indication: SMOKING CESSATION THERAPY
     Dosage: 14 MG, QD, TRANSDERMAL
     Route: 062
     Dates: start: 20041222
  2. NICOTINE (NICOTINE) PATCH [Suspect]
     Indication: SMOKING CESSATION THERAPY
     Dates: end: 20041225

REACTIONS (18)
  - ALCOHOL USE [None]
  - ASTHENIA [None]
  - BLOOD PRESSURE INCREASED [None]
  - DIZZINESS [None]
  - DRUG TOXICITY [None]
  - DRY MOUTH [None]
  - DYSPNOEA [None]
  - FEELING JITTERY [None]
  - HEART RATE INCREASED [None]
  - HYPERVENTILATION [None]
  - HYPOKALAEMIA [None]
  - MALAISE [None]
  - NAUSEA [None]
  - PALPITATIONS [None]
  - TETANY [None]
  - TREATMENT NONCOMPLIANCE [None]
  - TREMOR [None]
  - VIRAL INFECTION [None]
